FAERS Safety Report 18659779 (Version 1)
Quarter: 2020Q4

REPORT INFORMATION
  Report Type: Spontaneous
  Country: DE (occurrence: DE)
  Receive Date: 20201224
  Receipt Date: 20201224
  Transmission Date: 20210114
  Serious: Yes (Hospitalization)
  Sender: FDA-Public Use
  Company Number: DE-PFIZER INC-2020510209

PATIENT
  Weight: 2.94 kg

DRUGS (1)
  1. CYTOTEC [Suspect]
     Active Substance: MISOPROSTOL
     Indication: LABOUR INDUCTION
     Dosage: 100 UG, FREQ:2 H;
     Route: 064
     Dates: start: 20200410

REACTIONS (2)
  - Foetal exposure during delivery [Recovered/Resolved]
  - Base excess decreased [Recovered/Resolved]

NARRATIVE: CASE EVENT DATE: 20200410
